FAERS Safety Report 16301306 (Version 2)
Quarter: 2019Q2

REPORT INFORMATION
  Report Type: Spontaneous
  Country: CO (occurrence: CO)
  Receive Date: 20190510
  Receipt Date: 20190515
  Transmission Date: 20190711
  Serious: Yes (Other)
  Sender: FDA-Public Use
  Company Number: CO-BIOMARINAP-CO-2019-123551

PATIENT
  Sex: Male

DRUGS (1)
  1. VIMIZIM [Suspect]
     Active Substance: ELOSULFASE ALFA
     Indication: PRODUCT USED FOR UNKNOWN INDICATION
     Dosage: 60 MILLIGRAM
     Route: 065
     Dates: start: 20150615

REACTIONS (11)
  - Body temperature increased [Unknown]
  - Anxiety [Unknown]
  - Cough [Unknown]
  - Respiratory distress [Recovering/Resolving]
  - Diarrhoea [Unknown]
  - Productive cough [Recovering/Resolving]
  - Malaise [Unknown]
  - Myalgia intercostal [Unknown]
  - Sleep apnoea syndrome [Unknown]
  - Chest pain [Recovering/Resolving]
  - Syncope [Recovering/Resolving]
